FAERS Safety Report 14138358 (Version 1)
Quarter: 2017Q4

REPORT INFORMATION
  Report Type: Spontaneous
  Country: US (occurrence: US)
  Receive Date: 20171027
  Receipt Date: 20171027
  Transmission Date: 20180321
  Serious: No
  Sender: FDA-Public Use
  Company Number: US-BRACCO-2017US03513

PATIENT
  Age: 39 Year
  Sex: Male

DRUGS (1)
  1. VOLUMEN [Suspect]
     Active Substance: BARIUM SULFATE
     Indication: COMPUTERISED TOMOGRAM
     Dosage: UNK, SINGLE
     Route: 048
     Dates: start: 20170727, end: 20170727

REACTIONS (5)
  - Nausea [Recovering/Resolving]
  - White blood cell count increased [Recovering/Resolving]
  - Abdominal pain [Recovering/Resolving]
  - Chills [Recovering/Resolving]
  - Diarrhoea [Recovering/Resolving]

NARRATIVE: CASE EVENT DATE: 20170727
